FAERS Safety Report 7428073-2 (Version None)
Quarter: 2011Q2

REPORT INFORMATION
  Report Type: 
  Country: None (occurrence: None)
  Receive Date: 20110421
  Receipt Date: 20110412
  Transmission Date: 20111010
  Serious: No
  Sender: FDA-Public Use
  Company Number: US-BIOGENIDEC-2010BI017051

PATIENT
  Age: 41 Year
  Sex: Female

DRUGS (3)
  1. TYSABRI [Suspect]
     Indication: MULTIPLE SCLEROSIS
     Route: 042
     Dates: start: 20070510, end: 20100513
  2. TYSABRI [Suspect]
     Route: 042
     Dates: start: 20110131
  3. AVONEX [Concomitant]
     Indication: MULTIPLE SCLEROSIS
     Route: 030
     Dates: start: 20010913

REACTIONS (5)
  - FATIGUE [None]
  - ASTHENIA [None]
  - NAUSEA [None]
  - VOMITING [None]
  - MIGRAINE [None]
